FAERS Safety Report 9049092 (Version 3)
Quarter: 2013Q3

REPORT INFORMATION
  Report Type: Spontaneous
  Country: HU (occurrence: HU)
  Receive Date: 20130205
  Receipt Date: 20130802
  Transmission Date: 20140515
  Serious: Yes (Hospitalization, Disabling)
  Sender: FDA-Public Use
  Company Number: HU-ROCHE-1186858

PATIENT
  Age: 57 Year
  Sex: Female

DRUGS (2)
  1. MABTHERA [Suspect]
     Indication: RHEUMATOID ARTHRITIS
     Route: 041
     Dates: start: 20090702, end: 20120125
  2. MABTHERA [Suspect]
     Route: 041
     Dates: end: 20120125

REACTIONS (1)
  - Clear cell renal cell carcinoma [Not Recovered/Not Resolved]
